FAERS Safety Report 11166186 (Version 3)
Quarter: 2020Q2

REPORT INFORMATION
  Report Type: Report from Study
  Country: ZA (occurrence: ZA)
  Receive Date: 20150605
  Receipt Date: 20200518
  Transmission Date: 20200713
  Serious: Yes (Other)
  Sender: FDA-Public Use
  Company Number: PHHY2014ZA174144

PATIENT
  Age: 68 Year
  Sex: Female

DRUGS (2)
  1. TUVIGIN [Suspect]
     Active Substance: FINGOLIMOD HYDROCHLORIDE
     Dosage: 0.5 MG, QD
     Route: 065
     Dates: start: 20141114
  2. TUVIGIN [Suspect]
     Active Substance: FINGOLIMOD HYDROCHLORIDE
     Indication: RELAPSING-REMITTING MULTIPLE SCLEROSIS
     Dosage: UNK
     Route: 065
     Dates: start: 20141114

REACTIONS (11)
  - Blood cholesterol increased [Unknown]
  - Investigation abnormal [Unknown]
  - Blood triglycerides increased [Unknown]
  - Low density lipoprotein increased [Unknown]
  - Gamma-glutamyltransferase increased [Unknown]
  - Blood glucose increased [Unknown]
  - Non-high-density lipoprotein cholesterol increased [Unknown]
  - Total cholesterol/HDL ratio increased [Unknown]
  - Bradycardia [Unknown]
  - Protein total decreased [Unknown]
  - Blood pressure fluctuation [Unknown]

NARRATIVE: CASE EVENT DATE: 20141114
